FAERS Safety Report 17618970 (Version 2)
Quarter: 2020Q2

REPORT INFORMATION
  Report Type: Spontaneous
  Country: DE (occurrence: DE)
  Receive Date: 20200402
  Receipt Date: 20200506
  Transmission Date: 20200713
  Serious: Yes (Hospitalization, Other)
  Sender: FDA-Public Use
  Company Number: DE-BRISTOL-MYERS SQUIBB COMPANY-BMS-2020-026196

PATIENT
  Sex: Male

DRUGS (2)
  1. NIVOLUMAB [Suspect]
     Active Substance: NIVOLUMAB
     Indication: COLON CANCER
     Dosage: UNAVAILABLE
     Route: 065
  2. IPILIMUMAB [Suspect]
     Active Substance: IPILIMUMAB
     Indication: COLON CANCER
     Route: 065

REACTIONS (12)
  - Asthenia [Unknown]
  - Rash [Unknown]
  - Autoimmune disorder [Unknown]
  - Pruritus [Unknown]
  - Pain in extremity [Unknown]
  - Intentional product use issue [Unknown]
  - Dyspnoea [Unknown]
  - Myalgia [Unknown]
  - Arthralgia [Unknown]
  - Liver function test abnormal [Unknown]
  - Gastrointestinal disorder [Unknown]
  - Renal function test abnormal [Unknown]
